FAERS Safety Report 8622215-9 (Version None)
Quarter: 2012Q3

REPORT INFORMATION
  Report Type: 
  Country: None (occurrence: None)
  Receive Date: 20120827
  Receipt Date: 20120817
  Transmission Date: 20120928
  Serious: Yes (Hospitalization)
  Sender: FDA-Public Use
  Company Number: US-AMGEN-USASP2012049926

PATIENT
  Age: 71 Year
  Sex: Female

DRUGS (21)
  1. METHOTREXATE [Concomitant]
     Dosage: UNK
  2. COUMADIN [Concomitant]
     Dosage: 4 MG, QD
  3. ENBREL [Suspect]
     Indication: JUVENILE ARTHRITIS
     Dosage: 25 MG, 2 TIMES/WK
     Dates: start: 20000223, end: 20120601
  4. FLONASE [Concomitant]
     Dosage: UNK UNK, BID
  5. POTASSIUM CHLORIDE [Concomitant]
     Dosage: 20 MEQ, BID
  6. MULTI-VITAMINS [Concomitant]
     Dosage: UNK UNK, QD
  7. ASPIRIN [Concomitant]
     Dosage: 81 MG, QD
  8. FOLIC ACID [Concomitant]
     Dosage: 1 MG, QD
  9. SIMVASTATIN [Concomitant]
     Dosage: 20 MG, BEDTIME
  10. CALCIUM CARBONATE [Concomitant]
     Dosage: 1250 MG, BID
  11. FUROSEMIDE [Concomitant]
     Dosage: 40 MG, BID
  12. PERCOCET [Concomitant]
     Indication: PAIN
     Dosage: 1 TAB. 4 TIMES QID
  13. PREDNISONE TAB [Concomitant]
     Dosage: 5 MG, QD
  14. ZOLOFT [Concomitant]
     Dosage: 50 MG, QD
  15. LOVENOX [Concomitant]
     Dosage: 80 MG, QD
  16. METOPROLOL TARTRATE [Concomitant]
     Dosage: 25 MG, QD
  17. PRILOSEC [Concomitant]
     Dosage: 40 MG, QD
  18. RECLAST [Concomitant]
     Dosage: 4 MG, ONCE YEAR
     Route: 040
  19. VITAMIN D [Concomitant]
     Dosage: 1000 UNIT, QD
  20. EVOXAC [Concomitant]
     Dosage: 30 MG, TID
  21. AMIODARONE HCL [Concomitant]
     Dosage: 400 MG, BID

REACTIONS (13)
  - PULMONARY HYPERTENSION [None]
  - HYPERLIPIDAEMIA [None]
  - VIRAL CARDIOMYOPATHY [None]
  - MITRAL VALVE INCOMPETENCE [None]
  - ATRIAL FIBRILLATION [None]
  - PEPTIC ULCER [None]
  - RHEUMATOID ARTHRITIS [None]
  - SJOGREN'S SYNDROME [None]
  - HYPERTENSION [None]
  - OSTEOPOROSIS [None]
  - CARDIAC FAILURE [None]
  - URINARY TRACT INFECTION [None]
  - DEPRESSION [None]
